FAERS Safety Report 12705576 (Version 1)
Quarter: 2016Q3

REPORT INFORMATION
  Report Type: Spontaneous
  Country: US (occurrence: None)
  Receive Date: 20160831
  Receipt Date: 20160831
  Transmission Date: 20161109
  Serious: No
  Sender: FDA-Public Use
  Company Number: None

PATIENT
  Age: 63 Year
  Sex: Female
  Weight: 65.77 kg

DRUGS (12)
  1. GABAPENTIN. [Suspect]
     Active Substance: GABAPENTIN
  2. TIZANIDINE. [Concomitant]
     Active Substance: TIZANIDINE
  3. OXYCODONE [Concomitant]
     Active Substance: OXYCODONE
  4. CHOLECALCIFEROL [Concomitant]
     Active Substance: CHOLECALCIFEROL
  5. ESTRACE [Concomitant]
     Active Substance: ESTRADIOL
  6. ALEDRONATE [Concomitant]
  7. LATANOPROST. [Concomitant]
     Active Substance: LATANOPROST
  8. LIPITOR [Concomitant]
     Active Substance: ATORVASTATIN CALCIUM
  9. ASPIRIN. [Concomitant]
     Active Substance: ASPIRIN
  10. OMEPRAZOLE. [Concomitant]
     Active Substance: OMEPRAZOLE
  11. BACLOFEN. [Concomitant]
     Active Substance: BACLOFEN
  12. CELEXA [Concomitant]
     Active Substance: CITALOPRAM HYDROBROMIDE

REACTIONS (1)
  - Sedation [None]

NARRATIVE: CASE EVENT DATE: 20151218
